FAERS Safety Report 20878989 (Version 2)
Quarter: 2022Q3

REPORT INFORMATION
  Report Type: Spontaneous
  Country: US (occurrence: US)
  Receive Date: 20220526
  Receipt Date: 20220808
  Transmission Date: 20221027
  Serious: No
  Sender: FDA-Public Use
  Company Number: US-BRISTOL-MYERS SQUIBB COMPANY-2022-047877

PATIENT
  Age: 65 Year
  Sex: Male
  Weight: 81.646 kg

DRUGS (2)
  1. REVLIMID [Suspect]
     Active Substance: LENALIDOMIDE
     Indication: Plasma cell myeloma
     Dosage: DOSE : FIRST CYCLE 2 PILLS LEFT;     FREQ : ONCE A DAY THREE WEEK ON/ONE WEEK OFF
     Route: 048
  2. REVLIMID [Suspect]
     Active Substance: LENALIDOMIDE
     Dosage: FREQ - QD * 21 DAYS THEN 7 DAYS OFF.
     Route: 048
     Dates: start: 20171024

REACTIONS (2)
  - Rash [Unknown]
  - Rash papular [Unknown]

NARRATIVE: CASE EVENT DATE: 20220524
